FAERS Safety Report 25933132 (Version 1)
Quarter: 2025Q4

REPORT INFORMATION
  Report Type: Spontaneous
  Country: JP (occurrence: JP)
  Receive Date: 20251017
  Receipt Date: 20251017
  Transmission Date: 20260117
  Serious: Yes (Hospitalization, Other)
  Sender: CATALYST PHARMA
  Company Number: JP-CATALYSTPHARMACEUTICALPARTNERS-JP-CATA-25-01547

PATIENT
  Age: 30 Year
  Sex: Female

DRUGS (8)
  1. PERAMPANEL [Suspect]
     Active Substance: PERAMPANEL
     Indication: Focal dyscognitive seizures
     Dosage: DOSE AND FREQUENCY UNKNOWN
     Route: 048
  2. PERAMPANEL [Suspect]
     Active Substance: PERAMPANEL
     Indication: Partial seizures with secondary generalisation
     Dosage: 6 MILLIGRAM(S), 1 IN 1 DAY
     Route: 048
  3. PERAMPANEL [Suspect]
     Active Substance: PERAMPANEL
     Indication: Epilepsy
     Dosage: 4 MILLIGRAMS (FREQUENCY UNKNOWN)
     Route: 048
  4. PERAMPANEL [Suspect]
     Active Substance: PERAMPANEL
     Dosage: 2 MILLIGRAM (FREQUENCY UNKNOWN)
     Route: 048
  5. VALPROATE SODIUM [Concomitant]
     Active Substance: VALPROATE SODIUM
     Indication: Epilepsy
     Dosage: 800 MILLIGRAMS, FREQUENCY UNKNOWN
     Route: 065
  6. LACOSAMIDE [Concomitant]
     Active Substance: LACOSAMIDE
     Indication: Epilepsy
     Dosage: 300 MILLIGRAMS, FREQUENCY UNKNOWN
     Route: 065
  7. LEVETIRACETAM [Concomitant]
     Active Substance: LEVETIRACETAM
     Indication: Epilepsy
     Dosage: 3000 MILLIGRAMS, FREQUENCY UNKNOWN
     Route: 065
  8. ACETAZOLAMIDE [Concomitant]
     Active Substance: ACETAZOLAMIDE
     Indication: Epilepsy
     Dosage: 500 MILLIGRAM, FREQUENCY UNKNOWN
     Route: 065

REACTIONS (4)
  - Electroencephalogram abnormal [Recovered/Resolved]
  - Psychotic disorder [Recovered/Resolved]
  - Amnesia [Recovered/Resolved]
  - Drug ineffective [Unknown]
